FAERS Safety Report 21378128 (Version 3)
Quarter: 2022Q4

REPORT INFORMATION
  Report Type: Report from Study
  Country: US (occurrence: US)
  Receive Date: 20220926
  Receipt Date: 20221109
  Transmission Date: 20230113
  Serious: Yes (Other)
  Sender: FDA-Public Use
  Company Number: US-BIOGEN-2022BI01157010

PATIENT
  Age: 43 Year
  Sex: Female

DRUGS (18)
  1. SPINRAZA [Suspect]
     Active Substance: NUSINERSEN
     Indication: Spinal muscular atrophy
     Route: 050
     Dates: start: 201801, end: 202012
  2. SPINRAZA [Suspect]
     Active Substance: NUSINERSEN
     Route: 050
     Dates: start: 20220216
  3. SPINRAZA [Suspect]
     Active Substance: NUSINERSEN
     Route: 050
     Dates: start: 20180130, end: 20220810
  4. SPINRAZA [Suspect]
     Active Substance: NUSINERSEN
     Route: 050
     Dates: start: 20220906
  5. BETAMETHASONE VALERATE [Concomitant]
     Active Substance: BETAMETHASONE VALERATE
     Indication: Product used for unknown indication
     Route: 050
     Dates: start: 20220114
  6. CLONAZEPAM [Concomitant]
     Active Substance: CLONAZEPAM
     Indication: Product used for unknown indication
     Dosage: TWO TABS EVERY OTHER DAY ALONG WITH THREE 0.5 TABLETS FOR TOTAL OF 5.5 MILLIGRAMS  EVERY OTHER DA...
     Route: 050
     Dates: start: 20210108
  7. DILAUDID [Concomitant]
     Active Substance: HYDROMORPHONE HYDROCHLORIDE
     Indication: Product used for unknown indication
     Dosage: 1MG/ML??20 MG EVERY DAY - 10 MG IN THE MORNING, 6 MG IN THE AFTERNOON, AND 4 MG IN THE EVENING
     Route: 050
     Dates: start: 20210720
  8. MOTRIN [Concomitant]
     Active Substance: IBUPROFEN
     Indication: Product used for unknown indication
     Dosage: EVERY 6 HOURS AS NEEDED
     Route: 050
  9. KETOCONAZOLE [Concomitant]
     Active Substance: KETOCONAZOLE
     Indication: Product used for unknown indication
     Dosage: SHAMPOO DAILY, LEAVE ON FOR 5-10 MINUTES. THEN RINSE
     Route: 050
     Dates: start: 20220127
  10. NARCAN [Concomitant]
     Active Substance: NALOXONE HYDROCHLORIDE
     Indication: Product used for unknown indication
     Dosage: SPRAY 0.1 ML (4MG) INTO ONE NOSTRIL FOR SUSPECTED OVERDOSE. REPEAT INTO OTHER NOSTRIL AFTER 2 TO ...
     Route: 050
     Dates: start: 20190114
  11. PHENERGAN [Concomitant]
     Active Substance: PROMETHAZINE HYDROCHLORIDE
     Indication: Product used for unknown indication
     Dosage: 25 MG BY MOUTH EVERY 6 HOURS AS NEEDED
     Route: 050
     Dates: start: 20211019
  12. BELSOMRA [Concomitant]
     Active Substance: SUVOREXANT
     Indication: Product used for unknown indication
     Dosage: AT BEDTIME
     Route: 050
     Dates: start: 20201212
  13. EFFEXOR [Concomitant]
     Active Substance: VENLAFAXINE HYDROCHLORIDE
     Indication: Product used for unknown indication
     Route: 050
     Dates: start: 20220321
  14. NUTREN 1.0 [Concomitant]
     Indication: Product used for unknown indication
     Dosage: 0.04 GRAM-1KCAL/ML LIQD
     Route: 050
  15. BUSPAR [Concomitant]
     Active Substance: BUSPIRONE HYDROCHLORIDE
     Indication: Product used for unknown indication
     Route: 050
     Dates: start: 20210907, end: 20220209
  16. VITAMIN D3 [Concomitant]
     Active Substance: CHOLECALCIFEROL
     Indication: Product used for unknown indication
     Dosage: 5000 UNIT/ML DROPS?TAKE 5000 UNITS BY MOUTH EVERY DAY
     Route: 050
     Dates: start: 20190822, end: 20220209
  17. ALDACTONE [Concomitant]
     Active Substance: SPIRONOLACTONE
     Indication: Product used for unknown indication
     Route: 050
  18. RISPERDAL [Concomitant]
     Active Substance: RISPERIDONE
     Indication: Product used for unknown indication
     Route: 050

REACTIONS (2)
  - Gastrointestinal stromal tumour [Unknown]
  - Irritable bowel syndrome [Unknown]

NARRATIVE: CASE EVENT DATE: 20220821
